FAERS Safety Report 21582714 (Version 1)
Quarter: 2022Q4

REPORT INFORMATION
  Report Type: Spontaneous
  Country: ZM (occurrence: ZM)
  Receive Date: 20221111
  Receipt Date: 20221111
  Transmission Date: 20230113
  Serious: Yes (Hospitalization)
  Sender: FDA-Public Use
  Company Number: ZM-CIPLA LTD.-2022ZM06539

PATIENT
  Age: 52 Year
  Sex: Male

DRUGS (4)
  1. ZIDOVUDINE [Suspect]
     Active Substance: ZIDOVUDINE
     Indication: HIV infection
     Dosage: UNK
     Route: 065
     Dates: start: 2017
  2. LAMIVUDINE [Concomitant]
     Active Substance: LAMIVUDINE
     Indication: HIV infection
     Dosage: UNK
     Route: 065
     Dates: start: 2017
  3. EFAVIRENZ [Concomitant]
     Active Substance: EFAVIRENZ
     Indication: HIV infection
     Dosage: UNK
     Route: 065
  4. EFAVIRENZ [Concomitant]
     Active Substance: EFAVIRENZ
     Dosage: UNK
     Route: 065
     Dates: start: 2017

REACTIONS (1)
  - Anaemia folate deficiency [Recovered/Resolved]

NARRATIVE: CASE EVENT DATE: 20220101
